FAERS Safety Report 5316431-1 (Version None)
Quarter: 2007Q2

REPORT INFORMATION
  Report Type: 
  Country: None (occurrence: None)
  Receive Date: 20070504
  Receipt Date: 20070425
  Transmission Date: 20071010
  Serious: Yes (Other)
  Sender: FDA-Public Use
  Company Number: PHEH2007US05651

PATIENT
  Age: 72 Year
  Sex: Female

DRUGS (10)
  1. ZELNORM [Suspect]
     Indication: CONSTIPATION
     Dosage: 6 MG, QD
     Route: 048
     Dates: start: 20060901, end: 20070411
  2. SYNTHROID [Concomitant]
     Indication: HYPOTHYROIDISM
  3. DIOVAN [Concomitant]
     Indication: HYPERTENSION
  4. CLARINEX /USA/ [Concomitant]
  5. ACETYLSALICYLIC ACID SRT [Concomitant]
     Indication: PROPHYLAXIS
  6. PREVACID [Concomitant]
  7. CREON [Concomitant]
     Indication: PANCREATIC DISORDER
  8. BONIVA [Concomitant]
     Indication: OSTEOPOROSIS
  9. CENTRUM SILVER [Concomitant]
  10. CALCIUM CHLORIDE [Concomitant]
     Dosage: 1000 MG, QD

REACTIONS (2)
  - OEDEMA PERIPHERAL [None]
  - VENOUS STENOSIS [None]
